FAERS Safety Report 15332787 (Version 3)
Quarter: 2018Q3

REPORT INFORMATION
  Report Type: Spontaneous
  Country: IT (occurrence: IT)
  Receive Date: 20180830
  Receipt Date: 20180919
  Transmission Date: 20181010
  Serious: Yes (Hospitalization)
  Sender: FDA-Public Use
  Company Number: IT-TEVA-2018-IT-949283

PATIENT
  Age: 14 Year
  Sex: Female
  Weight: 50 kg

DRUGS (2)
  1. PREDNISONE. [Suspect]
     Active Substance: PREDNISONE
     Indication: COLITIS ULCERATIVE
     Dosage: 25 MILLIGRAM DAILY;
     Route: 048
     Dates: start: 20180328, end: 20180531
  2. THALIDOMIDE [Concomitant]
     Active Substance: THALIDOMIDE
     Indication: COLITIS ULCERATIVE
     Dosage: 100 MILLIGRAM DAILY;
     Route: 048
     Dates: start: 20180401

REACTIONS (5)
  - Headache [Recovering/Resolving]
  - Idiopathic intracranial hypertension [Recovering/Resolving]
  - Nausea [Recovering/Resolving]
  - Vomiting [Recovering/Resolving]
  - Middle insomnia [Recovering/Resolving]

NARRATIVE: CASE EVENT DATE: 20180718
